FAERS Safety Report 6916864-3 (Version None)
Quarter: 2010Q3

REPORT INFORMATION
  Report Type: 
  Country: None (occurrence: None)
  Receive Date: 20100810
  Receipt Date: 20100806
  Transmission Date: 20110219
  Serious: Yes (Life-Threatening, Hospitalization)
  Sender: FDA-Public Use
  Company Number: FR-JNJFOC-20100507142

PATIENT
  Sex: Female
  Weight: 45 kg

DRUGS (1)
  1. RISPERDAL CONSTA [Suspect]
     Indication: MENTAL RETARDATION
     Route: 030

REACTIONS (5)
  - ATRIAL TACHYCARDIA [None]
  - CONGESTIVE CARDIOMYOPATHY [None]
  - MALAISE [None]
  - PERICARDIAL EFFUSION [None]
  - PLEURAL EFFUSION [None]
